FAERS Safety Report 12740289 (Version 2)
Quarter: 2016Q3

REPORT INFORMATION
  Report Type: Report from Study
  Country: US (occurrence: US)
  Receive Date: 20160913
  Receipt Date: 20160929
  Transmission Date: 20161109
  Serious: Yes (Hospitalization)
  Sender: FDA-Public Use
  Company Number: US-ROCHE-1741204

PATIENT
  Age: 56 Year
  Sex: Male
  Weight: 83.01 kg

DRUGS (1)
  1. ATEZOLIZUMAB [Suspect]
     Active Substance: ATEZOLIZUMAB
     Indication: TRANSITIONAL CELL CARCINOMA
     Dosage: MOST RECENT DOSE PRIOR TO THE EVENTS OF WORSENED BILATERAL PTOSIS, DYSPHAGIA AND NERVOUS SYSTEM DISO
     Route: 042
     Dates: end: 20160322

REACTIONS (3)
  - Myasthenia gravis [Not Recovered/Not Resolved]
  - Dysphagia [Recovering/Resolving]
  - Eyelid ptosis [Recovering/Resolving]

NARRATIVE: CASE EVENT DATE: 20160315
